FAERS Safety Report 23016166 (Version 2)
Quarter: 2023Q4

REPORT INFORMATION
  Report Type: Report from Study
  Country: IE (occurrence: IE)
  Receive Date: 20231002
  Receipt Date: 20231121
  Transmission Date: 20240110
  Serious: Yes (Death, Disabling)
  Sender: FDA-Public Use
  Company Number: IE-DSJP-DSU-2022-112867

PATIENT
  Age: 66 Year
  Sex: Female
  Weight: 58.2 kg

DRUGS (1)
  1. ENHERTU [Suspect]
     Active Substance: FAM-TRASTUZUMAB DERUXTECAN-NXKI
     Indication: HER2 positive breast cancer
     Dosage: 314 MG, ONCE EVERY 3 WK
     Route: 042
     Dates: start: 20210506, end: 20220325

REACTIONS (2)
  - Death [Fatal]
  - Metastases to liver [Not Recovered/Not Resolved]

NARRATIVE: CASE EVENT DATE: 20220415
